FAERS Safety Report 13945285 (Version 7)
Quarter: 2019Q1

REPORT INFORMATION
  Report Type: Report from Study
  Country: US (occurrence: US)
  Receive Date: 20170907
  Receipt Date: 20190128
  Transmission Date: 20190417
  Serious: Yes (Other)
  Sender: FDA-Public Use
  Company Number: US-PFIZER INC-2017380872

PATIENT
  Age: 51 Year
  Sex: Female
  Weight: 75 kg

DRUGS (50)
  1. CARVEDILOL. [Concomitant]
     Active Substance: CARVEDILOL
     Dosage: 3.125 MG, TWICE DAILY
     Route: 048
     Dates: start: 20150713, end: 20150916
  2. OFLOXACIN OPHTHALMIC [Concomitant]
     Active Substance: OFLOXACIN
     Dosage: 1 DROP, TWICE DAILY
     Route: 047
     Dates: start: 20160804
  3. VORICONAZOLE. [Concomitant]
     Active Substance: VORICONAZOLE
     Dosage: 200 MG, TWICE DAILY
     Route: 048
     Dates: start: 20160506, end: 20160520
  4. GABAPENTIN. [Concomitant]
     Active Substance: GABAPENTIN
     Dosage: 300 MG, TWICE DAILY
     Route: 048
     Dates: start: 20151105
  5. HYDROXYUREA. [Concomitant]
     Active Substance: HYDROXYUREA
     Indication: CHRONIC MYELOID LEUKAEMIA
     Dosage: 500 MG, TWICE DAILY
     Route: 048
     Dates: start: 20150511, end: 20150622
  6. HYDROXYUREA. [Concomitant]
     Active Substance: HYDROXYUREA
     Dosage: UNK
  7. BENADRYL [Concomitant]
     Active Substance: DIPHENHYDRAMINE HYDROCHLORIDE
     Dosage: 50 MG, FOUR TIMES DAILY
     Route: 048
     Dates: start: 20150630, end: 20150815
  8. MEDROL DOSE PACK [Concomitant]
     Active Substance: METHYLPREDNISOLONE
     Dosage: 4 MG, OTHER, PER LABELING
     Route: 048
     Dates: start: 20150630
  9. PEPCID [Concomitant]
     Active Substance: FAMOTIDINE
     Dosage: 20 MG, TWICE DAILY
     Route: 048
     Dates: start: 20150630
  10. ONDANSETRON [Concomitant]
     Active Substance: ONDANSETRON
     Dosage: 4 MG, AS NEEDED
     Route: 048
     Dates: start: 20160603
  11. ALLOPURINOL. [Concomitant]
     Active Substance: ALLOPURINOL
     Indication: CHRONIC MYELOID LEUKAEMIA
     Dosage: 300 MG, TWICE DAILY
     Route: 048
     Dates: start: 20150508, end: 20150622
  12. FAMOTIDINE. [Concomitant]
     Active Substance: FAMOTIDINE
     Indication: SYSTEMIC LUPUS ERYTHEMATOSUS
     Dosage: 40 MG, EVERY DAY
     Route: 048
     Dates: start: 20160502, end: 20160615
  13. DOXYCYCLINE. [Concomitant]
     Active Substance: DOXYCYCLINE
     Indication: SYSTEMIC LUPUS ERYTHEMATOSUS
     Dosage: 50 MG, EVERY DAY
     Route: 048
     Dates: start: 20150917, end: 20160801
  14. ACYCLOVIR. [Concomitant]
     Active Substance: ACYCLOVIR
     Indication: HERPES ZOSTER
     Dosage: 400 MG, THREE TIMES DAILY
     Route: 048
     Dates: start: 20131018, end: 20160520
  15. TRAMADOL. [Concomitant]
     Active Substance: TRAMADOL
     Dosage: 50 MG, Q6H
     Route: 048
  16. TRAMADOL. [Concomitant]
     Active Substance: TRAMADOL
     Dosage: 50 MG, PRN AS NEEDED
     Route: 048
     Dates: start: 20161107
  17. IBUPROFEN. [Concomitant]
     Active Substance: IBUPROFEN
     Dosage: 600 MG, AS NEEDED
     Route: 048
     Dates: start: 20121214
  18. GABAPENTIN. [Concomitant]
     Active Substance: GABAPENTIN
     Indication: HERPES ZOSTER
     Dosage: 300 MG, THREE TIMES DAILY
     Route: 048
     Dates: start: 20131020, end: 20151104
  19. CARVEDILOL. [Concomitant]
     Active Substance: CARVEDILOL
     Dosage: 12.5 MG, TWICE DAILY
     Route: 048
     Dates: start: 20151214
  20. FERROUS SULFATE. [Concomitant]
     Active Substance: FERROUS SULFATE
     Dosage: 325 MG, TWICE DAILY
     Route: 048
     Dates: start: 20160418
  21. MYCOPHENOLATE MOFETIL. [Concomitant]
     Active Substance: MYCOPHENOLATE MOFETIL
     Indication: SYSTEMIC LUPUS ERYTHEMATOSUS
     Dosage: 500 MG, TWICE DAILY
     Route: 048
     Dates: start: 20160708, end: 20170324
  22. CYCLOSPORINE. [Concomitant]
     Active Substance: CYCLOSPORINE
     Dosage: UNK
     Dates: end: 20160225
  23. CYCLOSPORINE. [Concomitant]
     Active Substance: CYCLOSPORINE
     Dosage: 1 %, BID
     Dates: start: 20160414
  24. FAMOTIDINE. [Concomitant]
     Active Substance: FAMOTIDINE
     Indication: GASTROOESOPHAGEAL REFLUX DISEASE
  25. VIGAMOX [Concomitant]
     Active Substance: MOXIFLOXACIN HYDROCHLORIDE
     Indication: SYSTEMIC LUPUS ERYTHEMATOSUS
     Dosage: 1 DROP, TWICE DAILY
     Route: 047
     Dates: start: 20170317
  26. BOSUTINIB [Suspect]
     Active Substance: BOSUTINIB
     Dosage: INCREASED TO 500 MG, DAILY
     Route: 048
     Dates: start: 20160418
  27. HYDROXYCHLOROQUINE [Concomitant]
     Active Substance: HYDROXYCHLOROQUINE
     Indication: SYSTEMIC LUPUS ERYTHEMATOSUS
     Dosage: 400 MG, EVERY DAY
     Route: 048
     Dates: start: 20070501
  28. CEFALEXIN [Concomitant]
     Active Substance: CEPHALEXIN
     Dosage: 500 MG, TWICE DAILY
     Route: 048
     Dates: start: 20160514, end: 20160526
  29. CEFALEXIN [Concomitant]
     Active Substance: CEPHALEXIN
     Dosage: UNK
  30. PREDNISONE. [Concomitant]
     Active Substance: PREDNISONE
     Dosage: 10 MG, EVERY DAY
     Route: 048
     Dates: start: 20161021
  31. METHOTREXATE. [Concomitant]
     Active Substance: METHOTREXATE
     Indication: SYSTEMIC LUPUS ERYTHEMATOSUS
     Dosage: 10 MG, WEEKLY
     Route: 048
     Dates: start: 20170224, end: 20170629
  32. METHYLPREDNISOLONE. [Concomitant]
     Active Substance: METHYLPREDNISOLONE
     Dosage: 1 DROPS OCULAR/OPHTHALMIC FOUR TIMES DAILY
     Route: 047
     Dates: start: 20161229
  33. BOSUTINIB [Suspect]
     Active Substance: BOSUTINIB
     Indication: CHRONIC MYELOID LEUKAEMIA
     Dosage: 400 MG, DAILY
     Route: 048
     Dates: start: 20150617, end: 20160418
  34. BENADRYL [Concomitant]
     Active Substance: DIPHENHYDRAMINE HYDROCHLORIDE
     Dosage: 25 MG, THREE TIMES DAILY
     Route: 048
     Dates: start: 20150629, end: 20150630
  35. BENADRYL [Concomitant]
     Active Substance: DIPHENHYDRAMINE HYDROCHLORIDE
     Dosage: UNK
  36. TRAMADOL. [Concomitant]
     Active Substance: TRAMADOL
     Dosage: 50 MG, AS NEEDED
     Route: 048
     Dates: start: 20160511, end: 20160518
  37. AMITRIPTYLINE [Concomitant]
     Active Substance: AMITRIPTYLINE
     Indication: ANXIETY
     Dosage: 10 MG, EVERY DAY
     Route: 048
     Dates: start: 20120501
  38. LOPERAMIDE [Concomitant]
     Active Substance: LOPERAMIDE
     Dosage: 4 MG, PRN AS NEEDED
     Route: 048
     Dates: start: 20150618
  39. ACYCLOVIR. [Concomitant]
     Active Substance: ACYCLOVIR
     Dosage: UNK
  40. CYCLOSPORINE OPHTHALMIC [Concomitant]
     Indication: LUPUS-LIKE SYNDROME
     Dosage: 1 GTT, TWICE DAILY
     Route: 047
     Dates: start: 20150604, end: 20150902
  41. CYCLOBENZAPRINE. [Concomitant]
     Active Substance: CYCLOBENZAPRINE
     Dosage: 5 MG, AS NEEDED
     Route: 048
     Dates: start: 20170324
  42. OMEPRAZOLE. [Suspect]
     Active Substance: OMEPRAZOLE
     Indication: GASTROOESOPHAGEAL REFLUX DISEASE
     Dosage: 20 MG, EVERY DAY
     Route: 048
     Dates: start: 20160603
  43. PREVACID [Concomitant]
     Active Substance: LANSOPRAZOLE
     Indication: GASTROOESOPHAGEAL REFLUX DISEASE
     Dosage: 1 TABLET, EVERY DAY
     Route: 048
     Dates: start: 20150518, end: 20150618
  44. PREVACID [Concomitant]
     Active Substance: LANSOPRAZOLE
     Dosage: UNK
  45. CARVEDILOL. [Concomitant]
     Active Substance: CARVEDILOL
     Dosage: 6.25 MG, TWICE DAILY
     Route: 048
     Dates: start: 20150917, end: 20151209
  46. CARVEDILOL. [Concomitant]
     Active Substance: CARVEDILOL
     Dosage: 6.25 MG, 2X/DAY
  47. LOTEPREDNOL OPHTHALMIC [Concomitant]
     Dosage: 1 DROP, FOUR TIMES DAILY
     Route: 047
     Dates: start: 20160225
  48. LISINOPRIL. [Concomitant]
     Active Substance: LISINOPRIL
     Indication: CARDIAC FAILURE
     Dosage: 5 MG, EVERY DAY
     Route: 048
     Dates: start: 20151012
  49. PREDNISONE. [Concomitant]
     Active Substance: PREDNISONE
     Dosage: 20 MG, THREE TIMES DAILY
     Route: 048
     Dates: start: 20160426, end: 20160615
  50. CYCLOSPORINE. [Concomitant]
     Active Substance: CYCLOSPORINE
     Dosage: 1 DROP, TWICE DAILY
     Route: 047
     Dates: start: 20160804, end: 20161107

REACTIONS (1)
  - Hypomagnesaemia [Recovered/Resolved]

NARRATIVE: CASE EVENT DATE: 20170424
